FAERS Safety Report 23328732 (Version 2)
Quarter: 2024Q1

REPORT INFORMATION
  Report Type: Spontaneous
  Country: US (occurrence: US)
  Receive Date: 20231221
  Receipt Date: 20240108
  Transmission Date: 20240409
  Serious: Yes (Hospitalization, Other)
  Sender: FDA-Public Use
  Company Number: US-BAXTER-2023BAX038393

PATIENT
  Age: 64 Year
  Sex: Female
  Weight: 75.3 kg

DRUGS (31)
  1. DOXORUBICIN [Suspect]
     Active Substance: DOXORUBICIN
     Indication: Non-Hodgkin^s lymphoma
     Dosage: 92 MG, EVERY 3 WEEKS
     Route: 042
     Dates: start: 20230927, end: 20230927
  2. DOXORUBICIN [Suspect]
     Active Substance: DOXORUBICIN
     Dosage: 91.6 MG, EVERY 3 WEEKS, ONGOING
     Route: 042
     Dates: start: 20231017
  3. CYCLOPHOSPHAMIDE [Suspect]
     Active Substance: CYCLOPHOSPHAMIDE
     Indication: Non-Hodgkin^s lymphoma
     Dosage: 1380 MG, EVERY 3 WEEKS, ONGOING
     Route: 042
     Dates: start: 20230927
  4. EPCORITAMAB [Suspect]
     Active Substance: EPCORITAMAB
     Indication: Non-Hodgkin^s lymphoma
     Dosage: 0.16 MG PRIMING DOSE C1, D1, TOTAL
     Route: 058
     Dates: start: 20230927, end: 20230927
  5. EPCORITAMAB [Suspect]
     Active Substance: EPCORITAMAB
     Dosage: 0.16 MG, TOTAL
     Route: 058
     Dates: start: 20231010, end: 20231010
  6. EPCORITAMAB [Suspect]
     Active Substance: EPCORITAMAB
     Dosage: 0.8 MG INTERMEDIATE DOSE, TOTAL
     Route: 058
     Dates: start: 20231017, end: 20231017
  7. EPCORITAMAB [Suspect]
     Active Substance: EPCORITAMAB
     Dosage: 48 MG CL (STEP-UP), CYCLES 2 - 4 (WEEKLY) AND C5-8 (EVERY 3 WEEKS) PER PROTOCOL, EVERY 1 WEEKS
     Route: 058
     Dates: start: 20231024, end: 20231107
  8. EPCORITAMAB [Suspect]
     Active Substance: EPCORITAMAB
     Dosage: 48 MG CL (STEP-UP), CYCLES 2 - 4 (WEEKLY) AND C5-8 (EVERY 3 WEEKS) PER PROTOCOL, EVERY 1 WEEKS
     Route: 058
     Dates: start: 20231128
  9. RITUXIMAB [Suspect]
     Active Substance: RITUXIMAB
     Indication: Non-Hodgkin^s lymphoma
     Dosage: 690 MG, EVERY 3 WEEKS
     Route: 042
     Dates: start: 20230926, end: 20230926
  10. RITUXIMAB [Suspect]
     Active Substance: RITUXIMAB
     Dosage: 686 MG, EVERY 3 WEEKS, ONGOING
     Route: 042
     Dates: start: 20231017
  11. POLATUZUMAB VEDOTIN [Suspect]
     Active Substance: POLATUZUMAB VEDOTIN
     Indication: Non-Hodgkin^s lymphoma
     Dosage: 139.9 MG, EVERY 3 WEEKS
     Route: 042
     Dates: start: 20230927, end: 20230927
  12. POLATUZUMAB VEDOTIN [Suspect]
     Active Substance: POLATUZUMAB VEDOTIN
     Dosage: 137.7 MG, EVERY 3 WEEKS
     Route: 042
     Dates: start: 20231017, end: 20231017
  13. POLATUZUMAB VEDOTIN [Suspect]
     Active Substance: POLATUZUMAB VEDOTIN
     Dosage: 137.9 MG, EVERY 3 WEEKS, ONGOING
     Route: 042
     Dates: start: 20231107
  14. PREDNISONE [Suspect]
     Active Substance: PREDNISONE
     Indication: Non-Hodgkin^s lymphoma
     Dosage: 100 MG DL-5, CL-6, EVERY 1 DAYS, ONGOING
     Route: 048
     Dates: start: 20230926
  15. IBRUTINIB [Suspect]
     Active Substance: IBRUTINIB
     Indication: Non-Hodgkin^s lymphoma
     Dosage: UNK
     Route: 065
  16. VENETOCLAX [Suspect]
     Active Substance: VENETOCLAX
     Indication: Non-Hodgkin^s lymphoma
     Dosage: UNK
     Route: 065
  17. ACYCLOVIR [Concomitant]
     Active Substance: ACYCLOVIR
     Indication: Prophylaxis
     Dosage: 400 MG, 2/DAYS
     Route: 065
     Dates: start: 20230905
  18. ATORVASTATIN [Concomitant]
     Active Substance: ATORVASTATIN
     Indication: Hyperlipidaemia
     Dosage: 20 MG, EVERY 1 DAYS
     Route: 065
     Dates: start: 20161202
  19. ZYRTEC [Concomitant]
     Active Substance: CETIRIZINE HYDROCHLORIDE
     Indication: Hypersensitivity
     Dosage: 10 MG, EVERY 1 DAYS
     Route: 065
     Dates: start: 20161020
  20. LEXAPRO [Concomitant]
     Active Substance: ESCITALOPRAM OXALATE
     Indication: Depression
     Dosage: 10 MG, EVERY 1 DAYS
     Route: 065
     Dates: start: 20220526
  21. FLONASE [Concomitant]
     Active Substance: FLUTICASONE PROPIONATE
     Indication: Rhinitis allergic
     Dosage: 50 MG, 2/DAYS
     Route: 065
     Dates: start: 20160112
  22. FOLIC ACID [Concomitant]
     Active Substance: FOLIC ACID
     Indication: Anaemia
     Dosage: 1 MG, EVERY 1 DAYS
     Route: 065
     Dates: start: 20190207
  23. ONDANSETRON [Concomitant]
     Active Substance: ONDANSETRON
     Indication: Nausea
     Dosage: 8 MG, EVERY 8 HOURS
     Route: 065
     Dates: start: 20230905
  24. PROTONIX [Concomitant]
     Active Substance: PANTOPRAZOLE SODIUM
     Indication: Gastrooesophageal reflux disease
     Dosage: 40 MG, EVERY 1 DAYS
     Route: 065
     Dates: start: 20170301
  25. VITAMIN B12 [Concomitant]
     Active Substance: CYANOCOBALAMIN
     Indication: Anaemia
     Dosage: 100 MG, EVERY 1 DAYS
     Route: 065
     Dates: start: 20190207
  26. ACETAMINOPHEN [Concomitant]
     Active Substance: ACETAMINOPHEN
     Indication: Prophylaxis
     Dosage: 350 MG, EVERY 4 HOURS
     Route: 065
     Dates: start: 20231025
  27. SODIUM CHLORIDE [Concomitant]
     Active Substance: SODIUM CHLORIDE
     Indication: Dehydration
     Dosage: 100 ML 0.9%, CONTINUOUS
     Route: 065
     Dates: start: 20231025
  28. SIMETHICONE (DIMETHICONE) [Concomitant]
     Active Substance: DIMETHICONE
     Indication: Flatulence
     Dosage: 80 MG, EVERY 6 HOURS
     Route: 065
     Dates: start: 20231025
  29. MAGNESIUM OXIDE [Concomitant]
     Active Substance: MAGNESIUM OXIDE
     Indication: Prophylaxis
     Dosage: 400 MG, AS NECESSARY
     Route: 065
     Dates: start: 20231026
  30. GUAIFENESIN [Concomitant]
     Active Substance: GUAIFENESIN
     Indication: Oropharyngeal pain
     Dosage: 600 MG, 2/DAYS
     Route: 065
     Dates: start: 20231026
  31. ALLOPURINOL [Concomitant]
     Active Substance: ALLOPURINOL
     Indication: Prophylaxis
     Dosage: 300 MG, EVERY 1 DAYS
     Route: 065
     Dates: start: 20231025

REACTIONS (6)
  - Cytokine release syndrome [Recovered/Resolved]
  - COVID-19 [Unknown]
  - Pyrexia [Recovered/Resolved]
  - Chills [Unknown]
  - Pain in extremity [Unknown]
  - Cough [Unknown]

NARRATIVE: CASE EVENT DATE: 20231025
